FAERS Safety Report 6780187-6 (Version None)
Quarter: 2010Q2

REPORT INFORMATION
  Report Type: 
  Country: None (occurrence: None)
  Receive Date: 20100618
  Receipt Date: 20100614
  Transmission Date: 20101027
  Serious: Yes (Other)
  Sender: FDA-Public Use
  Company Number: DE-ROXANE LABORATORIES, INC.-2010-RO-00713RO

PATIENT
  Age: 68 Year
  Sex: Female

DRUGS (5)
  1. CYCLOPHOSPHAMIDE [Suspect]
     Indication: PEMPHIGUS
  2. DEXAMETHASONE [Suspect]
     Indication: PEMPHIGUS
  3. AZATHIOPRINE [Suspect]
     Indication: PEMPHIGUS
  4. MYCOPHENOLATE MOFETIL [Suspect]
     Indication: PEMPHIGUS
  5. SYSTEMIC GLUCOCORTICOSTEROIDS [Suspect]
     Indication: PEMPHIGUS

REACTIONS (2)
  - DRUG INEFFECTIVE FOR UNAPPROVED INDICATION [None]
  - POROKERATOSIS [None]
